FAERS Safety Report 10229688 (Version 2)
Quarter: 2014Q2

REPORT INFORMATION
  Report Type: Spontaneous
  Country: DE (occurrence: DE)
  Receive Date: 20140611
  Receipt Date: 20140611
  Transmission Date: 20141212
  Serious: Yes (Other)
  Sender: FDA-Public Use
  Company Number: DE-ROCHE-1397918

PATIENT
  Age: 84 Year
  Sex: Male

DRUGS (4)
  1. MABTHERA [Suspect]
     Indication: B-CELL LYMPHOMA
     Route: 026
     Dates: start: 20140320, end: 20140321
  2. XARELTO [Concomitant]
     Indication: ATRIAL FIBRILLATION
  3. ATENOLOL [Concomitant]
     Route: 065
  4. OMEPRAZOL [Concomitant]
     Route: 065

REACTIONS (4)
  - Body temperature increased [Unknown]
  - General physical health deterioration [Recovering/Resolving]
  - Malignant neoplasm progression [Unknown]
  - Off label use [Unknown]
